FAERS Safety Report 8185476-9 (Version None)
Quarter: 2012Q1

REPORT INFORMATION
  Report Type: 
  Country: None (occurrence: None)
  Receive Date: 20120305
  Receipt Date: 20120301
  Transmission Date: 20120608
  Serious: Yes (Hospitalization, Other)
  Sender: FDA-Public Use
  Company Number: US-PFIZER INC-2012043213

PATIENT
  Sex: Female
  Weight: 79.365 kg

DRUGS (6)
  1. CRESTOR [Concomitant]
     Dosage: 40 MG, DAILY
  2. LYRICA [Suspect]
     Indication: FIBROMYALGIA
     Dosage: 75 MG, 2X/DAY
     Dates: end: 20120101
  3. NEURONTIN [Suspect]
     Indication: ARTHROPATHY
     Dosage: 1200 MG, 2X/DAY
  4. PLAVIX [Concomitant]
     Indication: CARDIAC DISORDER
     Dosage: 75 MG, DAILY
  5. NEURONTIN [Suspect]
     Indication: LIMB DISCOMFORT
  6. CELEBREX [Suspect]
     Indication: NEUROPATHY PERIPHERAL
     Dosage: 200 MG, 2X/DAY

REACTIONS (2)
  - LABORATORY TEST ABNORMAL [None]
  - MYOCARDIAL INFARCTION [None]
